FAERS Safety Report 23858323 (Version 1)
Quarter: 2024Q2

REPORT INFORMATION
  Report Type: Spontaneous
  Country: US (occurrence: None)
  Receive Date: 20240515
  Receipt Date: 20240515
  Transmission Date: 20240716
  Serious: Yes (Death, Hospitalization)
  Sender: FDA-Public Use
  Company Number: None

PATIENT
  Sex: Male
  Weight: 59.9 kg

DRUGS (3)
  1. FLUOROURACIL [Suspect]
     Active Substance: FLUOROURACIL
     Dates: end: 20210920
  2. IRINOTECAN [Suspect]
     Active Substance: IRINOTECAN
     Dates: end: 20210929
  3. LEUCOVORIN CALCIUM [Suspect]
     Active Substance: LEUCOVORIN CALCIUM
     Dates: end: 20210929

REACTIONS (7)
  - Ascites [None]
  - Metastatic neoplasm [None]
  - Abdominal pain upper [None]
  - Vomiting [None]
  - Dysphagia [None]
  - Malnutrition [None]
  - Nausea [None]

NARRATIVE: CASE EVENT DATE: 20211007
